FAERS Safety Report 25486987 (Version 2)
Quarter: 2025Q4

REPORT INFORMATION
  Report Type: Spontaneous
  Country: CA (occurrence: CA)
  Receive Date: 20250627
  Receipt Date: 20251224
  Transmission Date: 20260117
  Serious: Yes (Other)
  Sender: APOTEX
  Company Number: CA-PGRTD-E2B_07713199

PATIENT
  Age: 53 Year
  Sex: Male

DRUGS (49)
  1. DULOXETINE HYDROCHLORIDE [Suspect]
     Active Substance: DULOXETINE HYDROCHLORIDE
     Indication: Migraine
     Dosage: UNK
     Route: 050
  2. ACETAMINOPHEN [Suspect]
     Active Substance: ACETAMINOPHEN
     Indication: Migraine
     Dosage: UNK
     Route: 061
  3. ACETAMINOPHEN\TRAMADOL [Suspect]
     Active Substance: ACETAMINOPHEN\TRAMADOL
     Indication: Product used for unknown indication
     Route: 061
  4. ACETAMINOPHEN\TRAMADOL [Suspect]
     Active Substance: ACETAMINOPHEN\TRAMADOL
     Indication: Migraine
  5. AMITRIPTYLINE [Suspect]
     Active Substance: AMITRIPTYLINE
     Indication: Product used for unknown indication
     Dosage: UNK
     Route: 065
  6. ESOMEPRAZOLE [Suspect]
     Active Substance: ESOMEPRAZOLE
     Indication: Product used for unknown indication
     Dosage: UNK
     Route: 065
  7. GABAPENTIN [Suspect]
     Active Substance: GABAPENTIN
     Indication: Product used for unknown indication
     Dosage: UNK
     Route: 050
  8. HYDROMORPHONE HYDROCHLORIDE [Suspect]
     Active Substance: HYDROMORPHONE HYDROCHLORIDE
     Indication: Migraine
     Dosage: UNK
     Route: 065
  9. HYDROMORPHONE HYDROCHLORIDE [Suspect]
     Active Substance: HYDROMORPHONE HYDROCHLORIDE
     Indication: Product used for unknown indication
  10. KETAMINE [Suspect]
     Active Substance: KETAMINE
     Indication: Migraine
     Dosage: UNK
     Route: 050
  11. NAPROXEN [Suspect]
     Active Substance: NAPROXEN
     Indication: Product used for unknown indication
     Dosage: UNK
     Route: 050
  12. ONDANSETRON [Suspect]
     Active Substance: ONDANSETRON
     Indication: Migraine
     Dosage: UNK
     Route: 065
  13. ONDANSETRON [Suspect]
     Active Substance: ONDANSETRON
     Dosage: UNK
     Route: 050
  14. PROPRANOLOL [Suspect]
     Active Substance: PROPRANOLOL HYDROCHLORIDE
     Indication: Migraine
     Dosage: UNK
     Route: 050
  15. TORADOL [Suspect]
     Active Substance: KETOROLAC TROMETHAMINE
     Indication: Migraine
     Route: 050
  16. TRIAMCINOLONE ACETONIDE [Suspect]
     Active Substance: TRIAMCINOLONE ACETONIDE
     Indication: Migraine
     Dosage: UNK
     Route: 065
  17. VENLAFAXINE HYDROCHLORIDE [Suspect]
     Active Substance: VENLAFAXINE HYDROCHLORIDE
     Dosage: UNK
     Route: 065
  18. DICLOFENAC POTASSIUM [Suspect]
     Active Substance: DICLOFENAC POTASSIUM
     Indication: Migraine
     Dosage: UNK
     Route: 050
  19. DICLOFENAC SODIUM [Suspect]
     Active Substance: DICLOFENAC SODIUM
     Indication: Product used for unknown indication
     Route: 065
  20. NORTRIPTYLINE [Suspect]
     Active Substance: NORTRIPTYLINE
     Indication: Product used for unknown indication
     Route: 065
  21. NORTRIPTYLINE [Suspect]
     Active Substance: NORTRIPTYLINE
     Dosage: 200 MILLIGRAM
     Route: 050
  22. CODEINE [Suspect]
     Active Substance: CODEINE
     Indication: Product used for unknown indication
     Dosage: UNK
     Route: 065
  23. ADVIL [Suspect]
     Active Substance: IBUPROFEN
     Indication: Product used for unknown indication
     Route: 065
  24. ALMOTRIPTAN MALATE [Suspect]
     Active Substance: ALMOTRIPTAN MALATE
     Indication: Product used for unknown indication
     Route: 065
  25. BOTOX [Suspect]
     Active Substance: ONABOTULINUMTOXINA
     Indication: Product used for unknown indication
     Route: 065
  26. BOTOX [Suspect]
     Active Substance: ONABOTULINUMTOXINA
     Route: 050
  27. BOTOX [Suspect]
     Active Substance: ONABOTULINUMTOXINA
     Route: 050
  28. BOTULINUM TOXIN TYPE A [Suspect]
     Active Substance: BOTULINUM TOXIN TYPE A
     Indication: Product used for unknown indication
     Dosage: 200 MILLIGRAM
     Route: 050
  29. BOTULINUM TOXIN TYPE A [Suspect]
     Active Substance: BOTULINUM TOXIN TYPE A
     Dosage: 1 DOSAGE FORM
     Route: 050
  30. BOTULINUM TOXIN TYPE A [Suspect]
     Active Substance: BOTULINUM TOXIN TYPE A
     Dosage: UNK
     Route: 065
  31. CELEBREX [Suspect]
     Active Substance: CELECOXIB
     Indication: Product used for unknown indication
     Route: 065
  32. CELEBREX [Suspect]
     Active Substance: CELECOXIB
     Dosage: 200 MILLIGRAM
     Route: 065
  33. DEMEROL [Suspect]
     Active Substance: MEPERIDINE HYDROCHLORIDE
     Indication: Product used for unknown indication
     Route: 050
  34. DIHYDROERGOTAMINE MESYLATE [Suspect]
     Active Substance: DIHYDROERGOTAMINE MESYLATE
     Indication: Migraine
     Dosage: UNK
     Route: 050
  35. MAXALT [Suspect]
     Active Substance: RIZATRIPTAN BENZOATE
     Indication: Product used for unknown indication
     Route: 050
  36. MORPHINE SULFATE [Suspect]
     Active Substance: MORPHINE SULFATE
     Indication: Migraine
     Route: 050
  37. DICLOFENAC SODIUM [Suspect]
     Active Substance: DICLOFENAC SODIUM
     Indication: Migraine
     Route: 050
  38. TENORETIC [Suspect]
     Active Substance: ATENOLOL\CHLORTHALIDONE
     Indication: Product used for unknown indication
     Dosage: 150 MILLIGRAM
     Route: 065
  39. TOPAMAX [Suspect]
     Active Substance: TOPIRAMATE
     Indication: Product used for unknown indication
     Route: 050
  40. TRIAMCINOLONE DIACETATE [Suspect]
     Active Substance: TRIAMCINOLONE DIACETATE
     Indication: Migraine
     Dosage: UNK
     Route: 065
  41. TYLENOL [Suspect]
     Active Substance: ACETAMINOPHEN
     Indication: Product used for unknown indication
     Route: 061
  42. ENDOCET [Suspect]
     Active Substance: ACETAMINOPHEN\OXYCODONE HYDROCHLORIDE
     Indication: Product used for unknown indication
     Route: 050
  43. ENDOCET [Suspect]
     Active Substance: ACETAMINOPHEN\OXYCODONE HYDROCHLORIDE
     Indication: Migraine
  44. CODEINE [Suspect]
     Active Substance: CODEINE
     Indication: Migraine
     Route: 065
  45. NEXIUM 24HR [Suspect]
     Active Substance: ESOMEPRAZOLE MAGNESIUM
     Indication: Product used for unknown indication
     Route: 061
  46. ACETAMINOPHEN\TRAMADOL [Suspect]
     Active Substance: ACETAMINOPHEN\TRAMADOL
     Indication: Migraine
     Route: 065
  47. ACETAMINOPHEN\TRAMADOL [Suspect]
     Active Substance: ACETAMINOPHEN\TRAMADOL
     Route: 065
  48. DICLOFENAC DIETHYLAMINE [Suspect]
     Active Substance: DICLOFENAC DIETHYLAMINE
     Indication: Migraine
     Route: 065
  49. DICLOFENAC DIETHYLAMINE [Suspect]
     Active Substance: DICLOFENAC DIETHYLAMINE
     Indication: Product used for unknown indication
     Route: 065

REACTIONS (8)
  - Nephrolithiasis [Unknown]
  - Nausea [Unknown]
  - Sedation [Unknown]
  - Product use in unapproved indication [Unknown]
  - Hyperhidrosis [Unknown]
  - Off label use [Unknown]
  - Nightmare [Unknown]
  - Drug ineffective [Unknown]
